FAERS Safety Report 21125535 (Version 3)
Quarter: 2022Q3

REPORT INFORMATION
  Report Type: Report from Study
  Country: US (occurrence: US)
  Receive Date: 20220725
  Receipt Date: 20220908
  Transmission Date: 20221027
  Serious: Yes (Life-Threatening, Other)
  Sender: FDA-Public Use
  Company Number: US-PFIZER INC-PV202200025465

PATIENT
  Age: 74 Year
  Sex: Male
  Weight: 134.69 kg

DRUGS (8)
  1. TALAZOPARIB [Suspect]
     Active Substance: TALAZOPARIB
     Indication: Prostate cancer metastatic
     Dosage: UNK UNK, 1X/DAY
     Route: 048
     Dates: start: 20220330, end: 20220718
  2. ENZALUTAMIDE [Suspect]
     Active Substance: ENZALUTAMIDE
     Indication: Prostate cancer metastatic
     Dosage: 160 MG, 1X/DAY
     Route: 048
     Dates: start: 20220330, end: 20220718
  3. LUPRON [Suspect]
     Active Substance: LEUPROLIDE ACETATE
     Indication: Hormone suppression therapy
     Dosage: 22.5 MG, EVERY 3 MONTHS
     Dates: start: 20220330
  4. COUMADIN [Suspect]
     Active Substance: WARFARIN SODIUM
  5. IBUPROFEN [Concomitant]
     Active Substance: IBUPROFEN
     Indication: Pain
     Dosage: 400 MG, EVERY NIGHT (QPM)
     Route: 048
  6. ATORVASTATIN [Concomitant]
     Active Substance: ATORVASTATIN
     Indication: Hypercholesterolaemia
     Dosage: 20 MG, EVERY NIGHT (QPM)
     Route: 048
     Dates: start: 20141105
  7. HYDROCHLOROTHIAZIDE\IRBESARTAN [Concomitant]
     Active Substance: HYDROCHLOROTHIAZIDE\IRBESARTAN
     Indication: Hypertension
     Dosage: [IRBESARTAN 12.5 MG]/[HYDROCHLOROTHIAZIDE 12.5 MG], 1X/DAY
     Route: 048
     Dates: start: 20200722
  8. ZOLEDRONIC ACID [Concomitant]
     Active Substance: ZOLEDRONIC ACID
     Indication: Bone disorder
     Dosage: 4 MG, EVERY 4 WEEKS
     Route: 042
     Dates: start: 20220622

REACTIONS (3)
  - Pulmonary embolism [Recovering/Resolving]
  - Acute respiratory failure [Recovering/Resolving]
  - Hypoxia [Recovering/Resolving]

NARRATIVE: CASE EVENT DATE: 20220717
